FAERS Safety Report 24023126 (Version 3)
Quarter: 2024Q3

REPORT INFORMATION
  Report Type: Report from Study
  Country: ZA (occurrence: ZA)
  Receive Date: 20240627
  Receipt Date: 20240710
  Transmission Date: 20241017
  Serious: No
  Sender: ROCHE
  Company Number: ZA-ROCHE-3561680

PATIENT
  Sex: Female

DRUGS (1)
  1. VABYSMO [Suspect]
     Active Substance: FARICIMAB\FARICIMAB-SVOA
     Indication: Macular degeneration
     Dosage: 0.5 ML OF 120/ML SOLUTION?NEXT INFUSION ON 22/APR/2024 AND 27/MAY/2024
     Route: 065
     Dates: start: 20240318

REACTIONS (2)
  - Off label use [Unknown]
  - No adverse event [Unknown]
